FAERS Safety Report 18418670 (Version 3)
Quarter: 2022Q2

REPORT INFORMATION
  Report Type: Spontaneous
  Country: FR (occurrence: FR)
  Receive Date: 20201023
  Receipt Date: 20220530
  Transmission Date: 20220721
  Serious: Yes (Death, Life-Threatening, Hospitalization, Other)
  Sender: FDA-Public Use
  Company Number: FR-NOVARTISPH-NVSC2020FR283966

PATIENT
  Age: 40 Year
  Sex: Female
  Weight: 78.088 kg

DRUGS (7)
  1. FEMARA [Suspect]
     Active Substance: LETROZOLE
     Indication: Breast cancer metastatic
     Dosage: UNK
     Route: 065
     Dates: start: 201808, end: 202002
  2. PACLITAXEL [Suspect]
     Active Substance: PACLITAXEL
     Indication: Breast cancer metastatic
     Dosage: 90 MG/M2, CYCLIC (ON DAY1, DAY8, DAY15 EVERY)
     Route: 042
     Dates: start: 202003
  3. PACLITAXEL [Suspect]
     Active Substance: PACLITAXEL
     Dosage: 90 MG/M2, CYCLIC
     Route: 042
     Dates: start: 20200424, end: 20200803
  4. PACLITAXEL [Suspect]
     Active Substance: PACLITAXEL
     Dosage: UNK
     Route: 065
     Dates: start: 202003
  5. PACLITAXEL [Suspect]
     Active Substance: PACLITAXEL
     Dosage: 170 MG 1 TOTAL
     Route: 041
     Dates: start: 20200803
  6. ENANTONE LP [Suspect]
     Active Substance: LEUPROLIDE ACETATE
     Indication: Breast cancer metastatic
     Dosage: UNK
     Route: 065
     Dates: start: 201808, end: 202002
  7. PALBOCICLIB [Suspect]
     Active Substance: PALBOCICLIB
     Indication: Breast cancer metastatic
     Dosage: UNK
     Route: 065
     Dates: start: 201808, end: 202002

REACTIONS (16)
  - Hepatic cytolysis [Fatal]
  - Hepatitis acute [Fatal]
  - Hepatic failure [Fatal]
  - Acute kidney injury [Fatal]
  - Generalised oedema [Fatal]
  - Malignant neoplasm progression [Fatal]
  - Metastases to liver [Fatal]
  - Hepatitis fulminant [Fatal]
  - Portal hypertension [Fatal]
  - Cell death [Fatal]
  - Anaemia [Fatal]
  - Hepatomegaly [Fatal]
  - C-reactive protein increased [Fatal]
  - Blood urea increased [Fatal]
  - Neutrophil count increased [Fatal]
  - Hepatocellular injury [Fatal]

NARRATIVE: CASE EVENT DATE: 20200101
